FAERS Safety Report 9192381 (Version 1)
Quarter: 2013Q1

REPORT INFORMATION
  Report Type: Spontaneous
  Country: US (occurrence: None)
  Receive Date: 20130326
  Receipt Date: 20130326
  Transmission Date: 20140127
  Serious: Yes (Disabling)
  Sender: FDA-Public Use
  Company Number: None

PATIENT
  Age: 54 Year
  Sex: Female
  Weight: 78.93 kg

DRUGS (1)
  1. CYMBALTA [Suspect]
     Indication: NEUROPATHY PERIPHERAL
     Route: 048

REACTIONS (6)
  - Nausea [None]
  - Dizziness [None]
  - Diarrhoea [None]
  - Muscle spasms [None]
  - Myalgia [None]
  - Drug withdrawal syndrome [None]
